FAERS Safety Report 21831832 (Version 1)
Quarter: 2023Q1

REPORT INFORMATION
  Report Type: Spontaneous
  Country: US (occurrence: US)
  Receive Date: 20230106
  Receipt Date: 20230106
  Transmission Date: 20230418
  Serious: Yes (Other)
  Sender: FDA-Public Use
  Company Number: US-BAYER-2023A001249

PATIENT
  Age: 83 Year
  Sex: Female

DRUGS (1)
  1. MIRALAX [Suspect]
     Active Substance: POLYETHYLENE GLYCOL 3350
     Indication: Gastrointestinal disorder
     Dosage: TAKING 1 DOSE MEASURED WITH THE CAP EVERY NIGHT SINCE A YEAR AGO
     Route: 048
     Dates: start: 20220104

REACTIONS (3)
  - Drug dependence [Unknown]
  - Incorrect product administration duration [None]
  - Extra dose administered [None]

NARRATIVE: CASE EVENT DATE: 20220401
